FAERS Safety Report 6403355-1 (Version None)
Quarter: 2009Q4

REPORT INFORMATION
  Report Type: 
  Country: None (occurrence: None)
  Receive Date: 20091013
  Receipt Date: 20090930
  Transmission Date: 20100525
  Serious: Yes (Death)
  Sender: FDA-Public Use
  Company Number: CLOF-1000721

PATIENT
  Age: 13 Year
  Sex: Male

DRUGS (12)
  1. EVOLTRA          (CLOFARABINE) SOLUTION FOR INFUSION [Suspect]
     Indication: NON-HODGKIN'S LYMPHOMA
     Dosage: 40 MG/M2, QDX5, INTRAVENOUS
     Route: 042
     Dates: start: 20090715, end: 20090719
  2. EVOLTRA          (CLOFARABINE) SOLUTION FOR INFUSION [Suspect]
     Indication: T-CELL LYMPHOMA
     Dosage: 40 MG/M2, QDX5, INTRAVENOUS
     Route: 042
     Dates: start: 20090715, end: 20090719
  3. VINCRISTINE (VINCRISTINE SULFATE) UNKNOWN [Suspect]
     Indication: NON-HODGKIN'S LYMPHOMA
     Dosage: 1.5 MG/M2, ONCE,1.5 MG/M2, ONCE
     Dates: start: 20090710, end: 20090710
  4. VINCRISTINE (VINCRISTINE SULFATE) UNKNOWN [Suspect]
     Indication: NON-HODGKIN'S LYMPHOMA
     Dosage: 1.5 MG/M2, ONCE,1.5 MG/M2, ONCE
     Dates: start: 20090813, end: 20090813
  5. DEXAMETHASONE(DEXAMETHASONE SODIUM SUCCINATE) UNKNOWN [Suspect]
     Indication: NON-HODGKIN'S LYMPHOMA
     Dosage: 10 MG/M2, ONCE; 10 MG/M2, QD; 6 MG/M2
     Dates: start: 20090710, end: 20090710
  6. DEXAMETHASONE(DEXAMETHASONE SODIUM SUCCINATE) UNKNOWN [Suspect]
     Indication: NON-HODGKIN'S LYMPHOMA
     Dosage: 10 MG/M2, ONCE; 10 MG/M2, QD; 6 MG/M2
     Dates: start: 20090813, end: 20090813
  7. DEXAMETHASONE(DEXAMETHASONE SODIUM SUCCINATE) UNKNOWN [Suspect]
     Indication: NON-HODGKIN'S LYMPHOMA
     Dosage: 10 MG/M2, ONCE; 10 MG/M2, QD; 6 MG/M2
     Dates: start: 20090715
  8. METHOTREXATE            (METHOTREXATE SODIUM) UNKNOWN [Suspect]
     Indication: NON-HODGKIN'S LYMPHOMA
     Dosage: 12 MG, ONCE, INTRATHECAL
     Route: 037
     Dates: start: 20060713, end: 20090713
  9. CYCLOPHOSPHAMIDE [Suspect]
     Indication: NON-HODGKIN'S LYMPHOMA
     Dosage: 300 MG/M2, QDX5
     Dates: start: 20090715, end: 20090719
  10. ERWINASE         (ASPARAGINASE) UNKNOWN [Suspect]
     Indication: NON-HODGKIN'S LYMPHOMA
     Dosage: 20000 OTHER, QOD
     Dates: start: 20090715
  11. ETOPOSIDE        (ETOPOSIDE PHOSPHATE) UNKNOWN [Suspect]
     Indication: NON-HODGKIN'S LYMPHOMA
     Dosage: 100 MG/M2, QDX5
     Dates: start: 20090715, end: 20090719
  12. NELARABINE           (NELAFIABINE) UNKNOWN [Suspect]
     Dosage: 910 MG
     Dates: start: 20090818

REACTIONS (3)
  - DISEASE PROGRESSION [None]
  - NON-HODGKIN'S LYMPHOMA [None]
  - T-CELL LYMPHOMA [None]
